FAERS Safety Report 7560907-3 (Version None)
Quarter: 2011Q2

REPORT INFORMATION
  Report Type: 
  Country: None (occurrence: None)
  Receive Date: 20110621
  Receipt Date: 20110609
  Transmission Date: 20111010
  Serious: Yes (Hospitalization, Other)
  Sender: FDA-Public Use
  Company Number: US-ELI_LILLY_AND_COMPANY-US201105003285

PATIENT
  Sex: Female

DRUGS (14)
  1. HYDROCODONE [Concomitant]
  2. CELEXA [Concomitant]
  3. FORTEO [Suspect]
     Dosage: 20 UG, QD
     Route: 065
  4. TRAZODONE HCL [Concomitant]
  5. BENICAR [Concomitant]
  6. PANTOPRAZOLE [Concomitant]
  7. CIPROFLOXACIN HCL [Concomitant]
  8. TRAMADOL HCL [Concomitant]
  9. TRILIPIX [Concomitant]
  10. FORTEO [Suspect]
     Indication: OSTEOPOROSIS
     Dosage: 20 UG, QD
     Route: 065
     Dates: start: 20110101
  11. AMBIEN [Concomitant]
  12. SIMCOR [Concomitant]
  13. WARFARIN SODIUM [Concomitant]
  14. KEFLEX [Concomitant]

REACTIONS (3)
  - ARTHRALGIA [None]
  - ARTHRITIS [None]
  - KNEE ARTHROPLASTY [None]
